FAERS Safety Report 23158940 (Version 2)
Quarter: 2023Q4

REPORT INFORMATION
  Report Type: Report from Study
  Country: CA (occurrence: CA)
  Receive Date: 20231108
  Receipt Date: 20231207
  Transmission Date: 20240110
  Serious: Yes (Death, Hospitalization, Other)
  Sender: FDA-Public Use
  Company Number: CA-Eisai-EC-2023-152092

PATIENT
  Age: 74 Year
  Sex: Female
  Weight: 68 kg

DRUGS (5)
  1. LENVIMA [Suspect]
     Active Substance: LENVATINIB
     Indication: Endometrial cancer
     Dosage: DOSE AND FREQUENCY UNKNOWN
     Route: 048
  2. PEMBROLIZUMAB [Suspect]
     Active Substance: PEMBROLIZUMAB
     Indication: Endometrial cancer
  3. AMLODIPINE [Concomitant]
     Active Substance: AMLODIPINE BESYLATE
     Indication: Hypertension
     Route: 048
  4. ONDANSETRON [Concomitant]
     Active Substance: ONDANSETRON
     Indication: Product used for unknown indication
     Dosage: DOSE AND FREQUENCY UNKNOWN
  5. TELMISARTAN [Concomitant]
     Active Substance: TELMISARTAN
     Indication: Hypertension
     Route: 048

REACTIONS (20)
  - Death [Fatal]
  - Acute kidney injury [Fatal]
  - Back pain [Fatal]
  - Blood magnesium decreased [Fatal]
  - Blood pressure increased [Fatal]
  - Central venous catheterisation [Fatal]
  - Decreased appetite [Fatal]
  - Fatigue [Fatal]
  - Hydronephrosis [Fatal]
  - Hypertension [Fatal]
  - Inappropriate schedule of product administration [Fatal]
  - Malaise [Fatal]
  - Malignant urinary tract obstruction [Fatal]
  - Nausea [Fatal]
  - Rash [Fatal]
  - Stomatitis [Fatal]
  - Urosepsis [Fatal]
  - Vascular access complication [Fatal]
  - Weight decreased [Fatal]
  - Pyelonephritis [Fatal]
